FAERS Safety Report 25172657 (Version 1)
Quarter: 2025Q2

REPORT INFORMATION
  Report Type: Report from Study
  Country: US (occurrence: US)
  Receive Date: 20250408
  Receipt Date: 20250408
  Transmission Date: 20250717
  Serious: Yes (Death, Other)
  Sender: TAKEDA
  Company Number: US-TAKEDA-2025TUS008702

PATIENT
  Sex: Female

DRUGS (9)
  1. FRUQUINTINIB [Suspect]
     Active Substance: FRUQUINTINIB
     Indication: Colon cancer
  2. FRUQUINTINIB [Suspect]
     Active Substance: FRUQUINTINIB
  3. ACETAMINOPHEN [Concomitant]
     Active Substance: ACETAMINOPHEN
  4. AMLODIPINE [Concomitant]
     Active Substance: AMLODIPINE BESYLATE
  5. ATORVASTATIN [Concomitant]
     Active Substance: ATORVASTATIN
  6. CARVEDILOL [Concomitant]
     Active Substance: CARVEDILOL
  7. LISINOPRIL [Concomitant]
     Active Substance: LISINOPRIL
  8. LOPERAMIDE [Concomitant]
     Active Substance: LOPERAMIDE
  9. PROCHLORPERAZINE [Concomitant]
     Active Substance: PROCHLORPERAZINE

REACTIONS (5)
  - Death [Fatal]
  - Pollakiuria [Not Recovered/Not Resolved]
  - Dry mouth [Unknown]
  - Gastrooesophageal reflux disease [Unknown]
  - Decreased appetite [Unknown]
